FAERS Safety Report 5602541-8 (Version None)
Quarter: 2008Q1

REPORT INFORMATION
  Report Type: 
  Country: None (occurrence: None)
  Receive Date: 20080125
  Receipt Date: 20080117
  Transmission Date: 20080703
  Serious: Yes (Hospitalization)
  Sender: FDA-Public Use
  Company Number: B0504998A

PATIENT
  Age: 49 Year
  Sex: Male

DRUGS (5)
  1. COMBIVIR [Suspect]
     Indication: HIV INFECTION
     Route: 065
     Dates: start: 20070629, end: 20070911
  2. OMEPRAZOLE [Concomitant]
     Indication: ABDOMINAL DISCOMFORT
     Dosage: 20MG PER DAY
     Route: 048
     Dates: start: 20060101
  3. ACYCLOVIR [Concomitant]
     Dosage: 900MG PER DAY
     Route: 042
     Dates: start: 20070706, end: 20070717
  4. METHADONE HCL [Concomitant]
     Indication: DRUG DEPENDENCE
     Dosage: 25MG PER DAY
     Route: 048
     Dates: start: 20020101
  5. VIREAD [Concomitant]
     Indication: HIV INFECTION
     Dosage: 254MG PER DAY
     Route: 048
     Dates: start: 20070706

REACTIONS (2)
  - BIOPSY BONE MARROW ABNORMAL [None]
  - REFRACTORY ANAEMIA WITH AN EXCESS OF BLASTS [None]
